FAERS Safety Report 23414936 (Version 2)
Quarter: 2024Q1

REPORT INFORMATION
  Report Type: Spontaneous
  Country: CN (occurrence: CN)
  Receive Date: 20240118
  Receipt Date: 20240123
  Transmission Date: 20240409
  Serious: Yes (Hospitalization, Other)
  Sender: FDA-Public Use
  Company Number: None

PATIENT
  Age: 23 Year
  Sex: Female

DRUGS (3)
  1. ENOXAPARIN SODIUM [Suspect]
     Active Substance: ENOXAPARIN SODIUM
     Indication: Angiopathy
     Dosage: 4000 IU, QD
     Route: 058
     Dates: start: 202010, end: 2020
  2. ASPIRIN [Suspect]
     Active Substance: ASPIRIN
     Indication: Angiopathy
     Dosage: 100 MG, QD
     Dates: start: 202010
  3. PROGESTERONE [Concomitant]
     Active Substance: PROGESTERONE
     Dosage: 100 MG, BID
     Dates: start: 2020

REACTIONS (6)
  - Subchorionic haematoma [Recovered/Resolved]
  - Back pain [Recovered/Resolved]
  - Abdominal distension [Recovered/Resolved]
  - Nausea [Recovered/Resolved]
  - Iron deficiency anaemia [Recovered/Resolved]
  - Abortion threatened [Recovered/Resolved]

NARRATIVE: CASE EVENT DATE: 20201229
